APPROVED DRUG PRODUCT: ETHACRYNIC ACID
Active Ingredient: ETHACRYNIC ACID
Strength: 25MG
Dosage Form/Route: TABLET;ORAL
Application: A211232 | Product #001 | TE Code: AB
Applicant: SCIEGEN PHARMACEUTICALS INC
Approved: Aug 27, 2019 | RLD: No | RS: No | Type: RX